FAERS Safety Report 12211248 (Version 1)
Quarter: 2016Q1

REPORT INFORMATION
  Report Type: Spontaneous
  Country: IT (occurrence: IT)
  Receive Date: 20160325
  Receipt Date: 20160325
  Transmission Date: 20160526
  Serious: Yes (Hospitalization)
  Sender: FDA-Public Use
  Company Number: IT-PFIZER INC-2016176433

PATIENT
  Sex: Female

DRUGS (3)
  1. ZOLOFT [Suspect]
     Active Substance: SERTRALINE HYDROCHLORIDE
     Indication: AGORAPHOBIA
     Dosage: 1 DF DAILY
     Route: 064
  2. EN [Suspect]
     Active Substance: DELORAZEPAM
     Indication: AGORAPHOBIA
     Dosage: 5 GTT, DAILY
     Route: 064
  3. SERENASE /00027401/ [Suspect]
     Active Substance: HALOPERIDOL
     Indication: AGORAPHOBIA
     Dosage: 5 GTT, UNK
     Route: 064

REACTIONS (2)
  - Maternal exposure during pregnancy [Recovered/Resolved]
  - Neonatal disorder [Recovered/Resolved]

NARRATIVE: CASE EVENT DATE: 20131229
